FAERS Safety Report 6050066-0 (Version None)
Quarter: 2009Q1

REPORT INFORMATION
  Report Type: 
  Country: None (occurrence: None)
  Receive Date: 20090126
  Receipt Date: 20090119
  Transmission Date: 20090719
  Serious: Yes (Hospitalization)
  Sender: FDA-Public Use
  Company Number: FR-BRISTOL-MYERS SQUIBB COMPANY-14475941

PATIENT
  Age: 41 Year
  Sex: Male

DRUGS (15)
  1. ABILIFY [Suspect]
     Dosage: DOSE INCREASED TO 15 MG/D
     Dates: start: 20081107
  2. RIFADIN [Interacting]
     Dosage: 2 DOSAGEFORM = 2 (UNITS NOT MENTIONED)
     Dates: start: 20081205, end: 20081215
  3. ZOLOFT [Concomitant]
  4. LIORESAL [Concomitant]
     Dosage: 3-2-2
  5. DANTRIUM [Concomitant]
  6. RIVOTRIL [Concomitant]
  7. NEURONTIN [Concomitant]
  8. PANTOPRAZOLE SODIUM [Concomitant]
  9. GAVISCON [Concomitant]
  10. DOXYCYCLINE [Concomitant]
     Dates: start: 20081118
  11. CEFUROXIME [Concomitant]
     Dates: start: 20081118
  12. TAZOCILLINE [Concomitant]
     Dates: start: 20081127, end: 20081205
  13. AMIKLIN [Concomitant]
     Dates: start: 20081129
  14. TIENAM [Concomitant]
     Dates: start: 20081205
  15. FLUCONAZOLE [Concomitant]
     Dates: start: 20081209

REACTIONS (3)
  - DRUG INTERACTION [None]
  - NO THERAPEUTIC RESPONSE [None]
  - PSYCHIATRIC DECOMPENSATION [None]
